FAERS Safety Report 9400575 (Version 1)
Quarter: 2013Q3

REPORT INFORMATION
  Report Type: Spontaneous
  Country: GB (occurrence: GB)
  Receive Date: 20130715
  Receipt Date: 20130715
  Transmission Date: 20140515
  Serious: Yes (Disabling, Other)
  Sender: FDA-Public Use
  Company Number: GB-WATSON-2013-12272

PATIENT
  Age: 67 Year
  Sex: Female

DRUGS (2)
  1. TERBINAFINE HYDROCHLORIDE (UNKNOWN) [Suspect]
     Indication: ONYCHOMYCOSIS
     Dosage: 250 MG, UNKNOWN
     Route: 048
     Dates: start: 20130328, end: 20130430
  2. ADCAL                              /00056901/ [Concomitant]
     Indication: OSTEOPENIA
     Dosage: 1 DF, TID
     Route: 065

REACTIONS (2)
  - Pain in extremity [Recovered/Resolved]
  - Burning sensation [Recovered/Resolved]
